FAERS Safety Report 10705236 (Version 2)
Quarter: 2017Q1

REPORT INFORMATION
  Report Type: Spontaneous
  Country: US (occurrence: US)
  Receive Date: 20150112
  Receipt Date: 20170313
  Transmission Date: 20170428
  Serious: Yes (Other)
  Sender: FDA-Public Use
  Company Number: US-ELI_LILLY_AND_COMPANY-US201501000797

PATIENT
  Age: 50 Year
  Sex: Male

DRUGS (7)
  1. CYMBALTA [Suspect]
     Active Substance: DULOXETINE HYDROCHLORIDE
     Indication: POST-TRAUMATIC STRESS DISORDER
     Dosage: 60 MG, QD
     Route: 065
     Dates: start: 200801, end: 201301
  2. CYMBALTA [Suspect]
     Active Substance: DULOXETINE HYDROCHLORIDE
     Indication: DEPRESSION
  3. NAPROXEN. [Concomitant]
     Active Substance: NAPROXEN
     Dosage: 500 MG, UNK
  4. METHYL SALICYLATE [Concomitant]
     Active Substance: METHYL SALICYLATE
  5. GABAPENTIN. [Concomitant]
     Active Substance: GABAPENTIN
  6. ZOLOFT [Concomitant]
     Active Substance: SERTRALINE HYDROCHLORIDE
     Dosage: 40 MG, UNKNOWN
     Route: 065
  7. AMLODIPINE BESYLATE. [Concomitant]
     Active Substance: AMLODIPINE BESYLATE

REACTIONS (25)
  - Depressed mood [Unknown]
  - Decreased appetite [Unknown]
  - Dysphoria [Unknown]
  - Haematochezia [Unknown]
  - Irritability [Unknown]
  - Suicidal ideation [Unknown]
  - Confusional state [Unknown]
  - Vertigo [Unknown]
  - Insomnia [Unknown]
  - Nightmare [Unknown]
  - Affect lability [Unknown]
  - Agitation [Unknown]
  - Nausea [Unknown]
  - Social avoidant behaviour [Unknown]
  - Seizure [Unknown]
  - Fatigue [Unknown]
  - Drug withdrawal syndrome [Unknown]
  - Amnesia [Unknown]
  - Paraesthesia [Unknown]
  - Insomnia [Unknown]
  - Mood swings [Unknown]
  - Thinking abnormal [Unknown]
  - Libido decreased [Unknown]
  - Dizziness [Unknown]
  - Anger [Unknown]

NARRATIVE: CASE EVENT DATE: 201301
